FAERS Safety Report 8208496-4 (Version None)
Quarter: 2012Q1

REPORT INFORMATION
  Report Type: 
  Country: None (occurrence: None)
  Receive Date: 20120314
  Receipt Date: 20120305
  Transmission Date: 20120608
  Serious: Yes (Other)
  Sender: FDA-Public Use
  Company Number: CA-JNJFOC-20120302747

PATIENT
  Sex: Female
  Weight: 76 kg

DRUGS (3)
  1. ACETAMINOPHEN [Concomitant]
     Indication: PREMEDICATION
     Route: 048
  2. REMICADE [Suspect]
     Indication: CROHN'S DISEASE
     Route: 042
     Dates: start: 20060101
  3. SOLU-CORTEF [Concomitant]
     Indication: PREMEDICATION
     Route: 065

REACTIONS (1)
  - BIOPSY THYROID GLAND [None]
